FAERS Safety Report 8008635 (Version 2)
Quarter: 2024Q1

REPORT INFORMATION
  Report Type: Spontaneous
  Country: FR (occurrence: FR)
  Receive Date: 20110624
  Receipt Date: 20240315
  Transmission Date: 20240410
  Serious: Yes (Life-Threatening, Other)
  Sender: FDA-Public Use
  Company Number: FR-SANOFI-AVENTIS-2011SA038274

PATIENT
  Age: 67 Year
  Sex: Male
  Weight: 109 kg

DRUGS (5)
  1. LANTUS [Suspect]
     Active Substance: INSULIN GLARGINE
     Dosage: UNK UNK,UNK
     Route: 065
     Dates: start: 2006
  2. INSULIN ASPART [Suspect]
     Active Substance: INSULIN ASPART
     Dosage: UNK UNK,UNK
     Route: 065
     Dates: start: 2008
  3. CELIPROLOL [Concomitant]
     Active Substance: CELIPROLOL
     Dosage: UNK
     Route: 065
  4. SIMVASTATIN [Concomitant]
     Active Substance: SIMVASTATIN
     Dosage: UNK
     Route: 065
  5. LOSARTAN [Concomitant]
     Active Substance: LOSARTAN

REACTIONS (1)
  - Pancreatic carcinoma [Recovered/Resolved with Sequelae]

NARRATIVE: CASE EVENT DATE: 20101001
